FAERS Safety Report 24210937 (Version 6)
Quarter: 2024Q4

REPORT INFORMATION
  Report Type: Report from Study
  Country: US (occurrence: US)
  Receive Date: 20240814
  Receipt Date: 20241104
  Transmission Date: 20250115
  Serious: Yes (Other)
  Sender: OTSUKA
  Company Number: US-OTSUKA-2024_022196

PATIENT
  Sex: Female

DRUGS (1)
  1. TOLVAPTAN [Suspect]
     Active Substance: TOLVAPTAN
     Indication: Congenital cystic kidney disease
     Dosage: 15 MG, BID
     Route: 065
     Dates: start: 20240712

REACTIONS (11)
  - Hallucination, visual [Unknown]
  - Cyst [Unknown]
  - Drug intolerance [Unknown]
  - Faeces discoloured [Recovered/Resolved]
  - Flank pain [Unknown]
  - Blood calcium increased [Unknown]
  - Breath odour [Recovered/Resolved]
  - Blood creatinine increased [Unknown]
  - Dry skin [Unknown]
  - Headache [Not Recovered/Not Resolved]
  - Underdose [Unknown]

NARRATIVE: CASE EVENT DATE: 20240718
